FAERS Safety Report 5042164-5 (Version None)
Quarter: 2006Q2

REPORT INFORMATION
  Report Type: 
  Country: None (occurrence: None)
  Receive Date: 20060627
  Receipt Date: 20060609
  Transmission Date: 20061013
  Serious: Yes (Hospitalization)
  Sender: FDA-Public Use
  Company Number: 5891

PATIENT
  Age: 49 Year
  Sex: Male
  Weight: 117.9352 kg

DRUGS (3)
  1. MINOXIDIL [Suspect]
     Indication: ALOPECIA
     Dosage: IM/BID/TOPICAL
     Route: 061
     Dates: start: 19960609, end: 20060609
  2. LOTREL [Concomitant]
  3. ATENOLOL [Concomitant]

REACTIONS (1)
  - HEART RATE INCREASED [None]
